FAERS Safety Report 16443887 (Version 2)
Quarter: 2022Q1

REPORT INFORMATION
  Report Type: Spontaneous
  Country: CA (occurrence: CA)
  Receive Date: 20190618
  Receipt Date: 20220307
  Transmission Date: 20220423
  Serious: Yes (Other)
  Sender: FDA-Public Use
  Company Number: CA-AUROBINDO-AUR-APL-2019-033230

PATIENT
  Age: 85 Year
  Sex: Male

DRUGS (3)
  1. CEFUROXIME [Interacting]
     Active Substance: CEFUROXIME
     Indication: Pneumonia
     Dosage: UNK
     Route: 065
  2. AZITHROMYCIN [Interacting]
     Active Substance: AZITHROMYCIN
     Indication: Pneumonia
     Dosage: UNK
     Route: 065
  3. WARFARIN [Suspect]
     Active Substance: WARFARIN
     Indication: Product used for unknown indication
     Dosage: UNK
     Route: 065

REACTIONS (2)
  - Anticoagulation drug level above therapeutic [Unknown]
  - Drug interaction [Unknown]
